FAERS Safety Report 10143720 (Version 2)
Quarter: 2014Q2

REPORT INFORMATION
  Report Type: Spontaneous
  Country: BR (occurrence: BR)
  Receive Date: 20140430
  Receipt Date: 20140523
  Transmission Date: 20141212
  Serious: Yes (Other)
  Sender: FDA-Public Use
  Company Number: BR-PFIZER INC-2014114691

PATIENT
  Age: 63 Year
  Sex: Female
  Weight: 95 kg

DRUGS (4)
  1. XALATAN [Suspect]
     Dosage: 1 DROP IN EACH EYE, 1X/DAY
     Route: 047
     Dates: start: 2012
  2. APRESOLINA [Concomitant]
     Indication: BLOOD PRESSURE ABNORMAL
     Dosage: 1 DF (1 TABLET), 2X/DAY
     Dates: start: 2012
  3. ATENSINA [Concomitant]
     Indication: BLOOD PRESSURE ABNORMAL
     Dosage: 1 DF (1 TABLET), 2X/DAY
     Dates: start: 2012
  4. INDAPEN SR [Concomitant]
     Indication: BLOOD PRESSURE ABNORMAL
     Dosage: UNK
     Dates: start: 2012

REACTIONS (1)
  - Cataract [Unknown]
